FAERS Safety Report 6186234-7 (Version None)
Quarter: 2009Q2

REPORT INFORMATION
  Report Type: 
  Country: None (occurrence: None)
  Receive Date: 20090511
  Receipt Date: 20090430
  Transmission Date: 20091009
  Serious: Yes (Hospitalization, Other)
  Sender: FDA-Public Use
  Company Number: PHEH2009US04282

PATIENT
  Sex: Female

DRUGS (19)
  1. FORADIL [Suspect]
  2. ADVAIR HFA [Suspect]
  3. SYMBICORT TURBUHALER ^DRACO^ [Suspect]
  4. XOPENEX [Suspect]
     Indication: ASTHMA
     Dosage: 90UG PRN
     Dates: start: 20090301
  5. FOLATE SODIUM [Concomitant]
     Dosage: UNK
     Dates: start: 20090327
  6. LYMPHOSTAT-B [Concomitant]
     Dosage: UNK
     Dates: end: 20090301
  7. PLAQUENIL [Concomitant]
  8. FLONASE [Concomitant]
  9. EPIPEN [Concomitant]
  10. ALLERGY MEDICATION [Concomitant]
  11. ZYFLO [Concomitant]
  12. LOTEMAX [Concomitant]
  13. RESTASIS [Concomitant]
  14. ASTELIN [Concomitant]
  15. VENTOLIN [Concomitant]
     Dosage: UNK
     Dates: end: 20090327
  16. CALCIUM [Concomitant]
     Dosage: UNK
     Dates: end: 20090327
  17. FISH OIL [Concomitant]
     Dosage: UNK
     Dates: end: 20090327
  18. SINGULAIR [Concomitant]
     Dosage: UNK
     Dates: end: 20090327
  19. METHOTREXATE [Concomitant]
     Dosage: UNK
     Dates: end: 20090327

REACTIONS (18)
  - ANXIETY [None]
  - ASTHENIA [None]
  - ASTHMA [None]
  - BLOOD GLUCOSE INCREASED [None]
  - BREATH SOUNDS ABNORMAL [None]
  - CHEST PAIN [None]
  - CHILLS [None]
  - COUGH [None]
  - DYSPNOEA [None]
  - HYPERSENSITIVITY [None]
  - MALAISE [None]
  - NAUSEA [None]
  - PAIN [None]
  - PHARYNGEAL OEDEMA [None]
  - PNEUMONIA [None]
  - PRESYNCOPE [None]
  - PYREXIA [None]
  - WHEEZING [None]
